FAERS Safety Report 9452295 (Version 1)
Quarter: 2013Q3

REPORT INFORMATION
  Report Type: Report from Study
  Country: BR (occurrence: BR)
  Receive Date: 20130812
  Receipt Date: 20130812
  Transmission Date: 20140515
  Serious: Yes (Death)
  Sender: FDA-Public Use
  Company Number: BR-ROCHE-1260379

PATIENT
  Sex: Female
  Weight: 13 kg

DRUGS (2)
  1. DORNASE ALFA [Suspect]
     Indication: PRODUCT USED FOR UNKNOWN INDICATION
     Route: 055
     Dates: start: 2009, end: 20130614
  2. PANCREATINE [Concomitant]
     Dosage: 1 TABLET BEFORE EACH MEAL AND 2 FOR SNACK TIME
     Route: 065

REACTIONS (4)
  - Death [Fatal]
  - Fatigue [Unknown]
  - Dyspnoea [Unknown]
  - Cough [Unknown]
